FAERS Safety Report 25529697 (Version 1)
Quarter: 2025Q3

REPORT INFORMATION
  Report Type: Spontaneous
  Country: US (occurrence: US)
  Receive Date: 20250708
  Receipt Date: 20250708
  Transmission Date: 20251021
  Serious: Yes (Hospitalization)
  Sender: BRISTOL-MYERS SQUIBB COMPANY
  Company Number: US-BRISTOL-MYERS SQUIBB COMPANY-2025-095789

PATIENT
  Age: 74 Year
  Sex: Male
  Weight: 48.08 kg

DRUGS (2)
  1. REVLIMID [Suspect]
     Active Substance: LENALIDOMIDE
     Indication: Marginal zone lymphoma
     Route: 048
     Dates: end: 20250609
  2. REVLIMID [Suspect]
     Active Substance: LENALIDOMIDE
     Dates: start: 202506

REACTIONS (1)
  - Gallbladder disorder [Recovering/Resolving]
